FAERS Safety Report 4859842-0 (Version None)
Quarter: 2005Q4

REPORT INFORMATION
  Report Type: 
  Country: None (occurrence: None)
  Receive Date: 20051219
  Receipt Date: 20051208
  Transmission Date: 20060501
  Serious: Yes (Other)
  Sender: FDA-Public Use
  Company Number: PHBS2005BE18128

PATIENT
  Age: 83 Year
  Sex: Female

DRUGS (4)
  1. AREDIA [Suspect]
     Indication: BREAST CANCER METASTATIC
     Dosage: 90 MG, QMO
     Dates: start: 19970101, end: 20030101
  2. ZOMETA [Suspect]
     Indication: BREAST CANCER METASTATIC
     Dosage: 4 MG, QMO
     Dates: start: 20030101
  3. HERCEPTIN [Suspect]
     Route: 065
  4. HERCEPTIN [Suspect]
     Dosage: TRIPLE DOSES EVERY 3 WEEKS
     Route: 065

REACTIONS (7)
  - ACTINOMYCOSIS [None]
  - BONE LESION [None]
  - IMPAIRED HEALING [None]
  - OSTEONECROSIS [None]
  - SUPERINFECTION [None]
  - TOOTH EXTRACTION [None]
  - WOUND DEBRIDEMENT [None]
